FAERS Safety Report 9286490 (Version 1)
Quarter: 2013Q2

REPORT INFORMATION
  Report Type: Spontaneous
  Country: US (occurrence: None)
  Receive Date: 20130510
  Receipt Date: 20130510
  Transmission Date: 20140414
  Serious: Yes (Hospitalization)
  Sender: FDA-Public Use
  Company Number: None

PATIENT
  Age: 82 Year
  Sex: Female
  Weight: 59.1 kg

DRUGS (15)
  1. GLIMEPIRIDE [Suspect]
     Indication: DIABETES MELLITUS
     Route: 048
  2. ASA [Concomitant]
  3. CA [Concomitant]
  4. MG [Concomitant]
  5. ZINC [Concomitant]
  6. MELOXICAM [Concomitant]
  7. VITAMIN B12 [Concomitant]
  8. VIT D [Concomitant]
  9. NAMENDA [Concomitant]
  10. LISINOPRIL [Concomitant]
  11. METOPROLOL [Concomitant]
  12. ZYPREXA [Concomitant]
  13. NYSTATIN [Concomitant]
  14. LIPITOR [Concomitant]
  15. REMERON [Concomitant]

REACTIONS (2)
  - Blood glucose decreased [None]
  - Mental status changes [None]
